FAERS Safety Report 7515876-9 (Version None)
Quarter: 2011Q2

REPORT INFORMATION
  Report Type: 
  Country: None (occurrence: None)
  Receive Date: 20110601
  Receipt Date: 20110525
  Transmission Date: 20111010
  Serious: No
  Sender: FDA-Public Use
  Company Number: US-PFIZER INC-2011078174

PATIENT
  Sex: Female

DRUGS (1)
  1. NITROSTAT [Suspect]
     Dosage: UNK
     Route: 060

REACTIONS (3)
  - DRUG INEFFECTIVE [None]
  - PARAESTHESIA ORAL [None]
  - GLOSSODYNIA [None]
